FAERS Safety Report 11474130 (Version 1)
Quarter: 2015Q3

REPORT INFORMATION
  Report Type: Spontaneous
  Country: US (occurrence: US)
  Receive Date: 20150908
  Receipt Date: 20150908
  Transmission Date: 20151125
  Serious: No
  Sender: FDA-Public Use
  Company Number: US-JAZZ-2013-US-001096

PATIENT
  Age: 52 Year
  Sex: Female

DRUGS (8)
  1. PHENERGAN [Concomitant]
     Active Substance: PROMETHAZINE HYDROCHLORIDE
     Indication: MIGRAINE
     Dosage: UNK
  2. XYREM [Suspect]
     Active Substance: SODIUM OXYBATE
     Dosage: 3.5 G FIRST DOSE,2.5 G SECOND DOSE
     Route: 048
     Dates: start: 20111118
  3. XYREM [Suspect]
     Active Substance: SODIUM OXYBATE
     Dosage: 3.5 G FIRST DOSE, 3 G SECOND DOSE
     Route: 048
     Dates: start: 20110711
  4. XYREM [Suspect]
     Active Substance: SODIUM OXYBATE
     Dosage: 3G FIRST DOSE,2.5 G SECOND DOSE
     Route: 048
     Dates: start: 20110614
  5. XYREM [Suspect]
     Active Substance: SODIUM OXYBATE
     Dosage: 3 G FIRST DOSE,2.5 G SECOND DOSE
     Dates: start: 20111014
  6. XYREM [Suspect]
     Active Substance: SODIUM OXYBATE
     Indication: INSOMNIA
     Dosage: 2.5 G, BID
     Route: 048
     Dates: start: 20110520
  7. XYREM [Suspect]
     Active Substance: SODIUM OXYBATE
     Dosage: 4 G FIRST DOSE,2.5 G SECOND DOSE
     Dates: start: 20120305
  8. XYREM [Suspect]
     Active Substance: SODIUM OXYBATE
     Dosage: 4.5 G FIRST DOSE, 3 G SECOND DOSE
     Route: 048
     Dates: start: 20120821

REACTIONS (2)
  - Restless legs syndrome [Not Recovered/Not Resolved]
  - Product use issue [Unknown]

NARRATIVE: CASE EVENT DATE: 20120215
